FAERS Safety Report 19500465 (Version 1)
Quarter: 2021Q3

REPORT INFORMATION
  Report Type: Spontaneous
  Country: FR (occurrence: FR)
  Receive Date: 20210707
  Receipt Date: 20210707
  Transmission Date: 20211014
  Serious: Yes (Life-Threatening)
  Sender: FDA-Public Use
  Company Number: FR-ACCORD-230802

PATIENT
  Age: 52 Year
  Sex: Male
  Weight: 63 kg

DRUGS (1)
  1. ETOPOSIDE ACCORD [Suspect]
     Active Substance: ETOPOSIDE
     Indication: ENTEROPATHY-ASSOCIATED T-CELL LYMPHOMA
     Dosage: 20 MG/ML, 350 MG
     Route: 042
     Dates: start: 20210520, end: 20210521

REACTIONS (1)
  - Anaphylactic shock [Recovered/Resolved]

NARRATIVE: CASE EVENT DATE: 20210520
